FAERS Safety Report 9391157 (Version 3)
Quarter: 2014Q1

REPORT INFORMATION
  Report Type: Spontaneous
  Country: US (occurrence: US)
  Receive Date: 20130709
  Receipt Date: 20140211
  Transmission Date: 20141002
  Serious: Yes (Hospitalization, Other)
  Sender: FDA-Public Use
  Company Number: US-JNJFOC-20130617735

PATIENT
  Age: 43 Year
  Sex: Male

DRUGS (7)
  1. INFLIXIMAB, RECOMBINANT [Suspect]
     Indication: CROHN^S DISEASE
     Route: 042
  2. INFLIXIMAB, RECOMBINANT [Suspect]
     Indication: CROHN^S DISEASE
     Route: 042
  3. PREDNISONE [Suspect]
     Indication: CROHN^S DISEASE
     Dosage: THE DOSE HAD BEEN TITRATED UP IN THE LAST 3 MONTHS??THE DOSE WAS TAPERED DOWN LATER
     Route: 065
  4. PREDNISONE [Suspect]
     Indication: CROHN^S DISEASE
     Route: 065
  5. AZATHIOPRINE [Suspect]
     Indication: CROHN^S DISEASE
     Route: 065
  6. AZATHIOPRINE [Suspect]
     Indication: CROHN^S DISEASE
     Route: 065
  7. AZATHIOPRINE [Suspect]
     Indication: CROHN^S DISEASE
     Route: 065

REACTIONS (2)
  - Histoplasmosis disseminated [Recovering/Resolving]
  - Dehydration [Recovering/Resolving]
